FAERS Safety Report 7028233-9 (Version None)
Quarter: 2010Q3

REPORT INFORMATION
  Report Type: 
  Country: None (occurrence: None)
  Receive Date: 20100930
  Receipt Date: 20100923
  Transmission Date: 20110219
  Serious: Yes (Hospitalization, Other)
  Sender: FDA-Public Use
  Company Number: 002463

PATIENT
  Sex: Male
  Weight: 67 kg

DRUGS (6)
  1. VIMPAT [Suspect]
     Indication: EPILEPSY
     Dosage: (50 MG QD ORAL) ; (150 MG BID, 3X50 MG TWICE DAILY ORAL)
     Route: 048
     Dates: start: 20090810, end: 20090821
  2. VIMPAT [Suspect]
     Indication: EPILEPSY
     Dosage: (50 MG QD ORAL) ; (150 MG BID, 3X50 MG TWICE DAILY ORAL)
     Route: 048
     Dates: start: 20090626
  3. LEVETIRACETAM [Suspect]
     Dosage: (500 MG, 500MG 1 1/2+0+1 1/2)
  4. FENEMAL (FENEMAL) [Suspect]
     Dosage: (50 MG)
  5. CARBAMAZEPINE [Suspect]
     Dosage: (200 MG, 200MG 3+0+3)
  6. UNKNOWN (VALPROTNAL) [Suspect]
     Dosage: (500 MG, 500MG 2+2+2)

REACTIONS (11)
  - ANXIETY [None]
  - ATRIAL FIBRILLATION [None]
  - ATRIAL FLUTTER [None]
  - BLOOD PRESSURE DECREASED [None]
  - CARDIAC DISORDER [None]
  - DIZZINESS [None]
  - DRUG EFFECT DECREASED [None]
  - FALL [None]
  - FATIGUE [None]
  - GAIT DISTURBANCE [None]
  - GENERAL PHYSICAL HEALTH DETERIORATION [None]
